FAERS Safety Report 17744448 (Version 2)
Quarter: 2020Q2

REPORT INFORMATION
  Report Type: Spontaneous
  Country: US (occurrence: US)
  Receive Date: 20200505
  Receipt Date: 20200612
  Transmission Date: 20200714
  Serious: No
  Sender: FDA-Public Use
  Company Number: US-BAYER-2020-070818

PATIENT
  Age: 74 Year
  Sex: Female

DRUGS (3)
  1. CLARITIN [Suspect]
     Active Substance: LORATADINE
     Indication: ALLERGIC RESPIRATORY SYMPTOM
     Dosage: AS LABELLED
     Route: 048
     Dates: start: 20200423, end: 20200424
  2. CLARITIN [Suspect]
     Active Substance: LORATADINE
     Indication: NASOPHARYNGITIS
  3. ZYRTEC [Suspect]
     Active Substance: CETIRIZINE HYDROCHLORIDE

REACTIONS (5)
  - Somnolence [Unknown]
  - Drug ineffective [Unknown]
  - Hypersomnia [Unknown]
  - Product expiration date issue [None]
  - Product lot number issue [None]

NARRATIVE: CASE EVENT DATE: 20200423
